FAERS Safety Report 8479913-X (Version None)
Quarter: 2012Q2

REPORT INFORMATION
  Report Type: 
  Country: None (occurrence: None)
  Receive Date: 20120629
  Receipt Date: 20120620
  Transmission Date: 20120825
  Serious: Yes (Other)
  Sender: FDA-Public Use
  Company Number: DE-ASTRAZENECA-2012SE32237

PATIENT
  Sex: Female

DRUGS (4)
  1. SEROQUEL [Suspect]
     Indication: DEPRESSION
     Route: 048
     Dates: start: 20100101, end: 20120301
  2. MARCUMAR [Concomitant]
  3. CITALOPRAM HYDROBROMIDE [Concomitant]
  4. SEROQUEL [Suspect]
     Indication: DELUSION
     Route: 048
     Dates: start: 20100101, end: 20120301

REACTIONS (2)
  - DYSPNOEA [None]
  - PULMONARY INFARCTION [None]
